FAERS Safety Report 7406572-7 (Version None)
Quarter: 2011Q2

REPORT INFORMATION
  Report Type: 
  Country: None (occurrence: None)
  Receive Date: 20110411
  Receipt Date: 20110406
  Transmission Date: 20111010
  Serious: Yes (Death)
  Sender: FDA-Public Use
  Company Number: US-ASTRAZENECA-2011SE08704

PATIENT
  Age: 35 Year
  Sex: Female

DRUGS (6)
  1. TRAZODONE HCL [Suspect]
     Indication: ANTIDEPRESSANT THERAPY
  2. SEROQUEL [Suspect]
     Route: 048
     Dates: end: 20110101
  3. ZOLOFT [Concomitant]
     Indication: ANTIDEPRESSANT THERAPY
  4. SERTRALINE HYDROCHLORIDE [Concomitant]
  5. TRAZODONE HCL [Suspect]
     Indication: SLEEP DISORDER
  6. CLONAZEPAM [Suspect]
     Indication: ANXIETY

REACTIONS (1)
  - COMPLETED SUICIDE [None]
